FAERS Safety Report 25433080 (Version 2)
Quarter: 2025Q2

REPORT INFORMATION
  Report Type: Spontaneous
  Country: US (occurrence: None)
  Receive Date: 20250613
  Receipt Date: 20250613
  Transmission Date: 20250717
  Serious: No
  Sender: MDD OPERATIONS
  Company Number: US-MDD US Operations-MDD202409-003512

PATIENT
  Age: 80 Year
  Sex: Female

DRUGS (2)
  1. APOKYN [Suspect]
     Active Substance: APOMORPHINE HYDROCHLORIDE
     Indication: Parkinson^s disease
     Dates: start: 20240822
  2. APOKYN [Suspect]
     Active Substance: APOMORPHINE HYDROCHLORIDE
     Dosage: FIRST SHIP DATE FROM ACCREDO: 05/AUG/2024
     Route: 058

REACTIONS (2)
  - Dizziness [Unknown]
  - Device issue [Unknown]

NARRATIVE: CASE EVENT DATE: 20240901
